FAERS Safety Report 10380411 (Version 1)
Quarter: 2014Q1

REPORT INFORMATION
  Report Type: Spontaneous
  Country: US (occurrence: None)
  Receive Date: 20140306
  Receipt Date: 20140306
  Transmission Date: 20141002
  Serious: Yes (Other)
  Sender: FDA-Public Use
  Company Number: 163-21880-13120117

PATIENT
  Age: 69 Year
  Sex: Male
  Weight: 79.4 kg

DRUGS (4)
  1. REVLIMID (LENALIDOMIDE) (10 MILLIGRAM, CAPSULES) [Suspect]
     Indication: PLASMA CELL MYELOMA
     Route: 048
     Dates: start: 201107
  2. ASPIRIN (ACETYLSALICYLIC ACID) (CHEWABLE TABLET) [Concomitant]
  3. VITAMIN B6 (PYRIDOXINE HYDROCHLORIDE) (TABLETS) [Concomitant]
  4. VITAMIN D3 (COLECALCIFEROL) (CAPSULES) [Concomitant]

REACTIONS (1)
  - Thrombosis [None]
